FAERS Safety Report 7088018-4 (Version None)
Quarter: 2010Q4

REPORT INFORMATION
  Report Type: 
  Country: None (occurrence: None)
  Receive Date: 20101108
  Receipt Date: 20101029
  Transmission Date: 20110411
  Serious: Yes (Hospitalization)
  Sender: FDA-Public Use
  Company Number: US-ASTRAZENECA-2010SE51517

PATIENT
  Age: 20 Year
  Sex: Male

DRUGS (3)
  1. SEROQUEL [Suspect]
     Dosage: THREE TIMES A DAY
     Route: 048
  2. SEROQUEL [Suspect]
     Dosage: TWO TIMES A DAY
     Route: 048
  3. SEROQUEL [Suspect]
     Route: 048
     Dates: start: 20101027

REACTIONS (4)
  - DELUSION [None]
  - HOSPITALISATION [None]
  - PSYCHOTIC BEHAVIOUR [None]
  - SOMNOLENCE [None]
